FAERS Safety Report 10076154 (Version 1)
Quarter: 2014Q2

REPORT INFORMATION
  Report Type: Spontaneous
  Country: GB (occurrence: GB)
  Receive Date: 20140414
  Receipt Date: 20140414
  Transmission Date: 20141212
  Serious: Yes (Other)
  Sender: FDA-Public Use
  Company Number: GB-SA-2014SA041604

PATIENT
  Sex: Female

DRUGS (1)
  1. CLEXANE [Suspect]
     Indication: PROPHYLAXIS
     Dosage: OVER TEN YEARS
     Route: 065

REACTIONS (3)
  - Abortion spontaneous [Unknown]
  - Premature separation of placenta [Recovered/Resolved]
  - Haemorrhage in pregnancy [Recovered/Resolved]
